FAERS Safety Report 22059795 (Version 1)
Quarter: 2023Q1

REPORT INFORMATION
  Report Type: Spontaneous
  Country: US (occurrence: US)
  Receive Date: 20230303
  Receipt Date: 20230303
  Transmission Date: 20230418
  Serious: No
  Sender: FDA-Public Use
  Company Number: US-SA-SAC20230301001505

PATIENT
  Sex: Female

DRUGS (2)
  1. DUPIXENT [Suspect]
     Active Substance: DUPILUMAB
     Indication: Dermatitis atopic
     Dosage: 300MG, QOW
     Route: 058
     Dates: start: 20211105
  2. ALLEGRA ALLERGY [Concomitant]
     Active Substance: FEXOFENADINE HYDROCHLORIDE
     Dosage: 180 MG

REACTIONS (3)
  - Sleep disorder [Unknown]
  - Dermatitis atopic [Unknown]
  - Inappropriate schedule of product administration [Unknown]
